FAERS Safety Report 10202015 (Version 1)
Quarter: 2014Q2

REPORT INFORMATION
  Report Type: Spontaneous
  Country: RO (occurrence: RO)
  Receive Date: 20140528
  Receipt Date: 20140528
  Transmission Date: 20141212
  Serious: Yes (Disabling, Other)
  Sender: FDA-Public Use
  Company Number: RO-BRISTOL-MYERS SQUIBB COMPANY-20797296

PATIENT
  Age: 56 Year
  Sex: Male

DRUGS (1)
  1. ENTECAVIR [Suspect]
     Indication: CHRONIC HEPATITIS B
     Route: 048
     Dates: start: 20111216

REACTIONS (1)
  - Sexual dysfunction [Unknown]
